FAERS Safety Report 15390659 (Version 2)
Quarter: 2019Q3

REPORT INFORMATION
  Report Type: Spontaneous
  Country: US (occurrence: US)
  Receive Date: 20180917
  Receipt Date: 20190814
  Transmission Date: 20191004
  Serious: Yes (Other)
  Sender: FDA-Public Use
  Company Number: US-SA-2018SA001936

PATIENT
  Age: 43 Year
  Sex: Female
  Weight: 82 kg

DRUGS (4)
  1. PARAPLATIN [Concomitant]
     Active Substance: CARBOPLATIN
     Indication: BREAST CANCER FEMALE
     Dosage: 670 MG, UNK
  2. HERCEPTIN [Concomitant]
     Active Substance: TRASTUZUMAB
     Indication: BREAST CANCER FEMALE
     Dosage: UNK UNK, UNK
  3. TAXOTERE [Suspect]
     Active Substance: DOCETAXEL
     Indication: BREAST CANCER FEMALE
     Dosage: Q3W, 125-140 MG
     Route: 042
     Dates: start: 20090309, end: 20090309
  4. TAXOTERE [Suspect]
     Active Substance: DOCETAXEL
     Dosage: UNK UNK, Q3W, 125-140 MG
     Route: 042
     Dates: start: 20090629, end: 20090629

REACTIONS (1)
  - Alopecia [Recovering/Resolving]

NARRATIVE: CASE EVENT DATE: 20090309
